FAERS Safety Report 9366116 (Version 1)
Quarter: 2013Q2

REPORT INFORMATION
  Report Type: Spontaneous
  Country: US (occurrence: US)
  Receive Date: 20130625
  Receipt Date: 20130625
  Transmission Date: 20140414
  Serious: Yes (Death)
  Sender: FDA-Public Use
  Company Number: US-ROCHE-1240833

PATIENT
  Sex: Female

DRUGS (3)
  1. CELLCEPT [Suspect]
     Indication: HEART TRANSPLANT
     Route: 065
  2. PREDNISONE [Concomitant]
  3. PROGRAF [Concomitant]

REACTIONS (1)
  - Death [Fatal]
